FAERS Safety Report 17466524 (Version 1)
Quarter: 2020Q1

REPORT INFORMATION
  Report Type: Spontaneous
  Country: IE (occurrence: IE)
  Receive Date: 20200227
  Receipt Date: 20200227
  Transmission Date: 20200409
  Serious: Yes (Life-Threatening, Hospitalization)
  Sender: FDA-Public Use
  Company Number: IE-ROCHE-2552830

PATIENT
  Age: 51 Year
  Sex: Female
  Weight: 83 kg

DRUGS (3)
  1. CITALOPRAM [Concomitant]
     Active Substance: CITALOPRAM HYDROBROMIDE
     Indication: DEPRESSION
     Route: 065
  2. TAMOXIFEN [Concomitant]
     Active Substance: TAMOXIFEN
     Indication: BREAST CANCER
     Route: 065
  3. HERCEPTIN [Suspect]
     Active Substance: TRASTUZUMAB
     Indication: BREAST CANCER METASTATIC
     Dosage: CYCLE ONE OF A NEW REGIMEN (651 MG LOADING DOSE) - BATCH EXPIRY 02/2023. PATIENT PREVIOUSLY HAD TEN
     Route: 041
     Dates: start: 20200129, end: 20200129

REACTIONS (6)
  - Oxygen saturation decreased [Unknown]
  - Tachycardia [Unknown]
  - Dyspnoea [Unknown]
  - Chills [Unknown]
  - Wheezing [Unknown]
  - Anaphylactic reaction [Unknown]

NARRATIVE: CASE EVENT DATE: 20200129
